FAERS Safety Report 19789837 (Version 2)
Quarter: 2021Q3

REPORT INFORMATION
  Report Type: Spontaneous
  Country: US (occurrence: US)
  Receive Date: 20210904
  Receipt Date: 20210911
  Transmission Date: 20211014
  Serious: Yes (Death, Other)
  Sender: FDA-Public Use
  Company Number: US-AMGEN-USASP2021136268

PATIENT

DRUGS (2)
  1. BLINATUMOMAB [Suspect]
     Active Substance: BLINATUMOMAB
     Indication: NON-HODGKIN^S LYMPHOMA
  2. BLINATUMOMAB [Suspect]
     Active Substance: BLINATUMOMAB
     Indication: ACUTE LYMPHOCYTIC LEUKAEMIA RECURRENT
     Dosage: UNK
     Route: 065

REACTIONS (8)
  - Death [Fatal]
  - B precursor type acute leukaemia [Fatal]
  - Cardiac arrest [Fatal]
  - Sepsis [Fatal]
  - Precursor T-lymphoblastic lymphoma/leukaemia recurrent [Unknown]
  - Drug ineffective [Unknown]
  - Non-Hodgkin^s lymphoma [Fatal]
  - Septic shock [Fatal]
